FAERS Safety Report 6184127-2 (Version None)
Quarter: 2009Q2

REPORT INFORMATION
  Report Type: 
  Country: None (occurrence: None)
  Receive Date: 20090508
  Receipt Date: 20090504
  Transmission Date: 20091009
  Serious: Yes (Life-Threatening, Other)
  Sender: FDA-Public Use
  Company Number: PHHY2009ZA16835

PATIENT
  Sex: Female

DRUGS (4)
  1. ACLASTA [Suspect]
  2. NEXIUM [Concomitant]
  3. ATORVASTATIN [Concomitant]
  4. ASPIRIN [Concomitant]

REACTIONS (8)
  - CHILLS [None]
  - FEELING ABNORMAL [None]
  - FINGER DEFORMITY [None]
  - INFLUENZA LIKE ILLNESS [None]
  - MOVEMENT DISORDER [None]
  - NAUSEA [None]
  - PAIN [None]
  - READING DISORDER [None]
